FAERS Safety Report 8990397 (Version 2)
Quarter: 2013Q3

REPORT INFORMATION
  Report Type: Report from Study
  Country: JP (occurrence: JP)
  Receive Date: 20121228
  Receipt Date: 20130709
  Transmission Date: 20140515
  Serious: Yes (Hospitalization)
  Sender: FDA-Public Use
  Company Number: JP-EISAI INC-E2020-11268-CLI-JP

PATIENT
  Age: 74 Year
  Sex: Female

DRUGS (20)
  1. ARICEPT [Suspect]
     Indication: DEMENTIA ALZHEIMER^S TYPE
     Route: 048
     Dates: start: 20110716, end: 20110728
  2. ARICEPT [Interacting]
     Route: 048
     Dates: start: 20110729
  3. MEMARY [Interacting]
     Indication: DEMENTIA ALZHEIMER^S TYPE
     Route: 048
     Dates: start: 20120507, end: 20120601
  4. MEMARY [Interacting]
     Route: 048
     Dates: start: 20120602, end: 20120620
  5. CALBLOCK [Interacting]
     Indication: PRODUCT USED FOR UNKNOWN INDICATION
     Route: 048
     Dates: start: 20120107, end: 20120601
  6. CALBLOCK [Interacting]
     Dates: start: 20120602, end: 20120614
  7. CO-DIO [Concomitant]
     Route: 048
     Dates: start: 20110525, end: 20120620
  8. EXFORGE [Concomitant]
     Route: 048
     Dates: start: 20110525, end: 20111204
  9. CODEINE PHOSPHATE HYDRATE [Concomitant]
     Route: 048
  10. ASVERIN [Concomitant]
     Route: 048
     Dates: start: 20110525, end: 20120620
  11. CILOSTAZOL [Concomitant]
     Route: 048
     Dates: start: 20110525, end: 20120620
  12. MAINTOWA [Concomitant]
     Route: 048
     Dates: start: 20110525, end: 20120620
  13. XYZAL [Concomitant]
     Route: 048
     Dates: start: 20110924, end: 20120619
  14. ASPIRIN [Concomitant]
     Route: 048
     Dates: start: 20110525, end: 20110819
  15. CALMESOSYN [Concomitant]
     Route: 048
     Dates: start: 20110525, end: 20110806
  16. NORVASC [Concomitant]
     Route: 048
     Dates: start: 20111205, end: 20120106
  17. CLARITH [Concomitant]
     Dates: start: 20111111, end: 20120620
  18. DIOVAN [Concomitant]
     Route: 048
     Dates: start: 20111205, end: 20120620
  19. BAYNAS [Concomitant]
     Route: 048
     Dates: start: 20110806, end: 20120620
  20. ADOAIR [Concomitant]

REACTIONS (3)
  - Renal failure acute [Recovered/Resolved]
  - Upper respiratory tract inflammation [Recovered/Resolved]
  - Drug interaction [Recovered/Resolved]
